FAERS Safety Report 9162996 (Version 1)
Quarter: 2013Q1

REPORT INFORMATION
  Report Type: Spontaneous
  Country: US (occurrence: None)
  Receive Date: 20130222
  Receipt Date: 20130222
  Transmission Date: 20140127
  Serious: Yes (Hospitalization)
  Sender: FDA-Public Use
  Company Number: IMP_06565_2013

PATIENT
  Age: 18 Year
  Sex: Female

DRUGS (5)
  1. OMEPRAZOLE [Suspect]
     Indication: IMMUNOSUPPRESSANT DRUG THERAPY
     Dosage: [PER DAY]
  2. OMEPRAZOLE [Suspect]
     Indication: GASTROOESOPHAGEAL REFLUX DISEASE
     Dosage: [PER DAY]
  3. TACROLIMUS [Suspect]
     Dosage: (DF)
  4. ESOMEPRAZOLE [Suspect]
     Dosage: [PER DAY]
  5. CEFDINIR [Concomitant]

REACTIONS (7)
  - Fatigue [None]
  - Sinusitis [None]
  - No therapeutic response [None]
  - Blood creatinine increased [None]
  - Drug level increased [None]
  - Drug interaction [None]
  - Toxicity to various agents [None]
